FAERS Safety Report 19577778 (Version 3)
Quarter: 2021Q3

REPORT INFORMATION
  Report Type: Spontaneous
  Country: US (occurrence: US)
  Receive Date: 20210719
  Receipt Date: 20210811
  Transmission Date: 20211014
  Serious: No
  Sender: FDA-Public Use
  Company Number: NVSC2021US159386

PATIENT
  Sex: Female

DRUGS (4)
  1. KESIMPTA [Suspect]
     Active Substance: OFATUMUMAB
     Indication: RELAPSING-REMITTING MULTIPLE SCLEROSIS
  2. KESIMPTA [Suspect]
     Active Substance: OFATUMUMAB
     Indication: RELAPSING MULTIPLE SCLEROSIS
     Dosage: 20 MG, QMO (SOLUTION, CUTANEOUS?ON THE SKIN)
     Route: 003
  3. KESIMPTA [Suspect]
     Active Substance: OFATUMUMAB
     Indication: CLINICALLY ISOLATED SYNDROME
  4. KESIMPTA [Suspect]
     Active Substance: OFATUMUMAB
     Indication: DISEASE PROGRESSION

REACTIONS (9)
  - Pain [Unknown]
  - Tongue disorder [Unknown]
  - Head discomfort [Unknown]
  - Nasal congestion [Unknown]
  - Hot flush [Unknown]
  - Ocular hyperaemia [Unknown]
  - Neck pain [Unknown]
  - Erythema [Unknown]
  - Myalgia [Unknown]
